FAERS Safety Report 5876793-3 (Version None)
Quarter: 2008Q3

REPORT INFORMATION
  Report Type: 
  Country: None (occurrence: None)
  Receive Date: 20080908
  Receipt Date: 20080908
  Transmission Date: 20090109
  Serious: Yes (Life-Threatening, Hospitalization, Other)
  Sender: FDA-Public Use
  Company Number: None

PATIENT
  Age: 28 Year
  Sex: Male
  Weight: 72.5755 kg

DRUGS (2)
  1. SUBOXONE [Suspect]
     Indication: DEPRESSION
     Dosage: 8MG TWICE A DAY SL
     Route: 060
     Dates: start: 20070210, end: 20080410
  2. SUBOXONE [Suspect]
     Indication: DRUG DEPENDENCE
     Dosage: 8MG TWICE A DAY SL
     Route: 060
     Dates: start: 20070210, end: 20080410

REACTIONS (9)
  - ANXIETY [None]
  - CONVULSION [None]
  - DELUSION [None]
  - DISCOMFORT [None]
  - DRUG WITHDRAWAL SYNDROME [None]
  - FEELING COLD [None]
  - HYPERHIDROSIS [None]
  - INSOMNIA [None]
  - MALAISE [None]
